FAERS Safety Report 10071108 (Version 3)
Quarter: 2014Q2

REPORT INFORMATION
  Report Type: Report from Study
  Country: TR (occurrence: TR)
  Receive Date: 20140410
  Receipt Date: 20140507
  Transmission Date: 20141212
  Serious: Yes (Hospitalization)
  Sender: FDA-Public Use
  Company Number: PHHY2014TR042238

PATIENT
  Age: 3 Year
  Sex: Female

DRUGS (2)
  1. EXJADE [Suspect]
     Indication: THALASSAEMIA BETA
     Dosage: 250 MG, DAILY
     Route: 048
     Dates: start: 2013
  2. EXJADE [Suspect]
     Dosage: 250 MG, DAILY
     Route: 048

REACTIONS (5)
  - Bronchitis [Recovered/Resolved]
  - Nausea [Recovering/Resolving]
  - Urinary tract infection [Recovering/Resolving]
  - Diarrhoea [Recovered/Resolved]
  - Vomiting [Unknown]
